FAERS Safety Report 19461627 (Version 2)
Quarter: 2021Q2

REPORT INFORMATION
  Report Type: Report from Study
  Country: MX (occurrence: MX)
  Receive Date: 20210625
  Receipt Date: 20210629
  Transmission Date: 20210717
  Serious: Yes (Death)
  Sender: FDA-Public Use
  Company Number: MX-CELGENEUS-MEX-20210606947

PATIENT
  Age: 35 Year
  Sex: Male

DRUGS (1)
  1. VIDAZA [Suspect]
     Active Substance: AZACITIDINE
     Indication: MYELODYSPLASTIC SYNDROME
     Dosage: 75 MILLIGRAM
     Route: 058
     Dates: start: 20200914, end: 20210209

REACTIONS (1)
  - Myelodysplastic syndrome transformation [Fatal]

NARRATIVE: CASE EVENT DATE: 20210209
